FAERS Safety Report 16766635 (Version 1)
Quarter: 2019Q4

REPORT INFORMATION
  Report Type: Spontaneous
  Country: US (occurrence: US)
  Receive Date: 20190831
  Receipt Date: 20190831
  Transmission Date: 20200122
  Serious: Yes (Life-Threatening, Hospitalization)
  Sender: FDA-Public Use
  Company Number: None

PATIENT
  Age: 67 Year
  Sex: Male

DRUGS (1)
  1. DAPTOMYCIN. [Suspect]
     Active Substance: DAPTOMYCIN
     Indication: STAPHYLOCOCCAL INFECTION
     Dates: start: 20190811, end: 20190825

REACTIONS (6)
  - Heart rate increased [None]
  - Seizure [None]
  - Therapy change [None]
  - Pyrexia [None]
  - Feeling cold [None]
  - Tremor [None]

NARRATIVE: CASE EVENT DATE: 20190825
